FAERS Safety Report 5334434-8 (Version None)
Quarter: 2007Q2

REPORT INFORMATION
  Report Type: 
  Country: None (occurrence: None)
  Receive Date: 20070525
  Receipt Date: 20060925
  Transmission Date: 20071010
  Serious: No
  Sender: FDA-Public Use
  Company Number: A0621200A

PATIENT
  Age: 73 Year
  Sex: Female

DRUGS (2)
  1. FLOLAN [Suspect]
     Route: 042
     Dates: start: 20060101, end: 20060919
  2. UNKNOWN [Concomitant]

REACTIONS (1)
  - DIARRHOEA [None]
